FAERS Safety Report 14918087 (Version 4)
Quarter: 2018Q2

REPORT INFORMATION
  Report Type: Report from Study
  Country: US (occurrence: US)
  Receive Date: 20180521
  Receipt Date: 20180618
  Transmission Date: 20180711
  Serious: No
  Sender: FDA-Public Use
  Company Number: US-AMGEN-USASL2018066284

PATIENT
  Age: 50 Year
  Sex: Female

DRUGS (1)
  1. ENBREL [Suspect]
     Active Substance: ETANERCEPT
     Indication: RHEUMATOID ARTHRITIS
     Dosage: 50 MG, QWK
     Route: 065
     Dates: start: 20180505

REACTIONS (9)
  - Arthralgia [Unknown]
  - Drug effect incomplete [Unknown]
  - Musculoskeletal pain [Recovered/Resolved]
  - Ear pain [Unknown]
  - Injection site erythema [Unknown]
  - Pain in extremity [Recovered/Resolved]
  - Injection site mass [Recovered/Resolved]
  - Injection site bruising [Unknown]
  - Fatigue [Unknown]

NARRATIVE: CASE EVENT DATE: 201805
